FAERS Safety Report 10381583 (Version 1)
Quarter: 2014Q3

REPORT INFORMATION
  Report Type: Spontaneous
  Country: US (occurrence: US)
  Receive Date: 20140813
  Receipt Date: 20140813
  Transmission Date: 20150326
  Serious: Yes (Hospitalization, Other)
  Sender: FDA-Public Use
  Company Number: US-009507513-1408USA005427

PATIENT
  Sex: Female
  Weight: 71.2 kg

DRUGS (1)
  1. NUVARING [Suspect]
     Active Substance: ETHINYL ESTRADIOL\ETONOGESTREL
     Indication: CONTRACEPTION
     Dosage: 1 VAG RING Q 30 DAYS
     Route: 067
     Dates: end: 20120112

REACTIONS (16)
  - Vitamin D deficiency [Unknown]
  - Vein disorder [Unknown]
  - Ear pain [Not Recovered/Not Resolved]
  - Tonsillitis [Not Recovered/Not Resolved]
  - Supraventricular tachycardia [Unknown]
  - Intracranial venous sinus thrombosis [Recovering/Resolving]
  - Drug ineffective [Unknown]
  - Mastoiditis [Unknown]
  - International normalised ratio decreased [Unknown]
  - Optic atrophy [Unknown]
  - Cataract subcapsular [Unknown]
  - Papilloedema [Recovered/Resolved]
  - Tonsillar hypertrophy [Unknown]
  - Cardiac operation [Unknown]
  - Weight increased [Unknown]
  - Oropharyngeal pain [Unknown]

NARRATIVE: CASE EVENT DATE: 201112
